FAERS Safety Report 5151557-7 (Version None)
Quarter: 2006Q4

REPORT INFORMATION
  Report Type: 
  Country: None (occurrence: None)
  Receive Date: 20061109
  Receipt Date: 20061025
  Transmission Date: 20070319
  Serious: Yes (Death)
  Sender: FDA-Public Use
  Company Number: 2006S1010056

PATIENT
  Age: 41 Year
  Sex: Female

DRUGS (5)
  1. CLOZAPINE [Suspect]
     Indication: MAJOR DEPRESSION
     Dosage: QD; PO
     Route: 048
     Dates: start: 20060201, end: 20061001
  2. CLOZAPINE [Suspect]
     Indication: SCHIZOAFFECTIVE DISORDER
     Dosage: QD; PO
     Route: 048
     Dates: start: 20060201, end: 20061001
  3. LAMOTRIGINE [Concomitant]
  4. DULOXETINE [Concomitant]
  5. TRAZODONE HCL [Concomitant]

REACTIONS (1)
  - DEATH [None]
